FAERS Safety Report 5068325-7 (Version None)
Quarter: 2006Q3

REPORT INFORMATION
  Report Type: 
  Country: None (occurrence: None)
  Receive Date: 20060802
  Receipt Date: 20050803
  Transmission Date: 20061208
  Serious: Yes (Other)
  Sender: FDA-Public Use
  Company Number: US-BRISTOL-MYERS SQUIBB COMPANY-13062070

PATIENT
  Sex: Male

DRUGS (1)
  1. COUMADIN [Suspect]
     Dosage: COUMADIN HELD UNTIL INR LEVEL DECREASED TO A NORMAL RANGE.

REACTIONS (2)
  - INTERNATIONAL NORMALISED RATIO INCREASED [None]
  - SUNBURN [None]
